FAERS Safety Report 14267637 (Version 1)
Quarter: 2017Q4

REPORT INFORMATION
  Report Type: Spontaneous
  Country: US (occurrence: US)
  Receive Date: 20171211
  Receipt Date: 20171211
  Transmission Date: 20180321
  Serious: No
  Sender: FDA-Public Use
  Company Number: US-ROCHE-1867437

PATIENT
  Sex: Female

DRUGS (72)
  1. DIAZEPAM. [Suspect]
     Active Substance: DIAZEPAM
     Indication: PRODUCT USED FOR UNKNOWN INDICATION
     Route: 065
  2. NYSTATIN. [Concomitant]
     Active Substance: NYSTATIN
  3. CLONIDINE. [Concomitant]
     Active Substance: CLONIDINE
     Dosage: CHANGE PATCH ONCE WEEKLY
     Route: 065
  4. CARAFATE [Concomitant]
     Active Substance: SUCRALFATE
     Dosage: SUSPENSION
     Route: 065
  5. LISINOPRIL. [Concomitant]
     Active Substance: LISINOPRIL
  6. WELLBUTRIN XL [Concomitant]
     Active Substance: BUPROPION HYDROCHLORIDE
  7. DULERA [Concomitant]
     Active Substance: FORMOTEROL FUMARATE DIHYDRATE\MOMETASONE FUROATE
  8. LUNESTA [Concomitant]
     Active Substance: ESZOPICLONE
  9. CLONAZEPAM. [Suspect]
     Active Substance: CLONAZEPAM
     Route: 065
  10. NEXIUM [Concomitant]
     Active Substance: ESOMEPRAZOLE MAGNESIUM
     Route: 065
  11. SYNTHROID [Concomitant]
     Active Substance: LEVOTHYROXINE SODIUM
     Dosage: ONE DAILY IN AM
     Route: 065
  12. MELATONIN [Concomitant]
     Active Substance: MELATONIN
  13. QUININE SULFATE. [Concomitant]
     Active Substance: QUININE SULFATE
  14. TALWIN [Concomitant]
     Active Substance: PENTAZOCINE LACTATE
  15. PROVIGIL [Concomitant]
     Active Substance: MODAFINIL
  16. NEURONTIN [Concomitant]
     Active Substance: GABAPENTIN
  17. INTAL INHALER [Concomitant]
  18. CYMBALTA [Concomitant]
     Active Substance: DULOXETINE HYDROCHLORIDE
  19. PROZAC [Concomitant]
     Active Substance: FLUOXETINE HYDROCHLORIDE
  20. FLUOCINONIDE. [Concomitant]
     Active Substance: FLUOCINONIDE
  21. SEREVENT DISKUS [Concomitant]
     Active Substance: SALMETEROL XINAFOATE
  22. SPIRIVA [Suspect]
     Active Substance: TIOTROPIUM BROMIDE MONOHYDRATE
     Indication: PRODUCT USED FOR UNKNOWN INDICATION
     Route: 065
  23. LACTASE [Concomitant]
     Active Substance: LACTASE
  24. POTASSIUM CHLORIDE. [Concomitant]
     Active Substance: POTASSIUM CHLORIDE
     Dosage: PRIOR HAD BEEN TAKING 40 MG/DAILY WITH PRIOR MED FORADIL
     Route: 065
  25. FLOVENT [Concomitant]
     Active Substance: FLUTICASONE PROPIONATE
     Dosage: 2 PUFFS TWICE DAILY
     Route: 065
  26. EPIPEN [Concomitant]
     Active Substance: EPINEPHRINE
  27. BETAMETHASONE DIPROPIONATE CREAM [Concomitant]
     Route: 065
  28. UNISOM (DOXYLAMINE SUCCINATE) [Concomitant]
  29. CALCIUM D3 [Concomitant]
     Active Substance: CALCIUM\CHOLECALCIFEROL
  30. VOLTAREN [Concomitant]
     Active Substance: DICLOFENAC SODIUM
     Dosage: GEL
     Route: 065
  31. DIFLUCAN [Concomitant]
     Active Substance: FLUCONAZOLE
  32. PLAQUINOL [Concomitant]
     Active Substance: HYDROXYCHLOROQUINE SULFATE
  33. SINGULAIR [Concomitant]
     Active Substance: MONTELUKAST SODIUM
  34. CELEXA [Concomitant]
     Active Substance: CITALOPRAM HYDROBROMIDE
  35. ADVAIR HFA [Concomitant]
     Active Substance: FLUTICASONE PROPIONATE\SALMETEROL XINAFOATE
  36. NEURONTIN [Suspect]
     Active Substance: GABAPENTIN
     Indication: PRODUCT USED FOR UNKNOWN INDICATION
     Route: 065
  37. XOPENEX HFA [Concomitant]
     Active Substance: LEVALBUTEROL TARTRATE
     Route: 065
  38. SYSTANE ULTRA [Concomitant]
     Active Substance: POLYETHYLENE GLYCOL 400\PROPYLENE GLYCOL
  39. MUCINEX [Concomitant]
     Active Substance: GUAIFENESIN
  40. METFORMIN [Concomitant]
     Active Substance: METFORMIN HYDROCHLORIDE
     Route: 065
  41. LIPITOR [Suspect]
     Active Substance: ATORVASTATIN CALCIUM
     Indication: PRODUCT USED FOR UNKNOWN INDICATION
     Route: 065
  42. ERYTHROMYCIN. [Concomitant]
     Active Substance: ERYTHROMYCIN
     Route: 065
  43. DESOXIMETASONE. [Concomitant]
     Active Substance: DESOXIMETASONE
     Dosage: FOR BOTH HANDS
     Route: 065
  44. ERYTHROMYCIN. [Concomitant]
     Active Substance: ERYTHROMYCIN
     Route: 065
  45. TUMS [Concomitant]
     Active Substance: CALCIUM CARBONATE
  46. KLONOPIN [Concomitant]
     Active Substance: CLONAZEPAM
  47. SPIRIVA [Concomitant]
     Active Substance: TIOTROPIUM BROMIDE MONOHYDRATE
  48. TRAMADOL. [Concomitant]
     Active Substance: TRAMADOL
     Route: 065
  49. TRAZODONE [Concomitant]
     Active Substance: TRAZODONE HYDROCHLORIDE
  50. CLONAZEPAM. [Suspect]
     Active Substance: CLONAZEPAM
     Route: 065
  51. DIFLUCAN [Suspect]
     Active Substance: FLUCONAZOLE
     Indication: PRODUCT USED FOR UNKNOWN INDICATION
     Route: 065
  52. EFFEXOR [Suspect]
     Active Substance: VENLAFAXINE HYDROCHLORIDE
     Indication: PRODUCT USED FOR UNKNOWN INDICATION
     Route: 065
  53. VERAMYST [Concomitant]
     Active Substance: FLUTICASONE FUROATE
     Dosage: ONE DOSE TWICE DAILY
     Route: 065
  54. ATIVAN [Concomitant]
     Active Substance: LORAZEPAM
     Dosage: TAKEN UPTO 1.25 PILL AT NIGHT
     Route: 065
  55. GAS-X [Concomitant]
     Active Substance: DIMETHICONE
  56. DOMPERIDONE [Concomitant]
     Active Substance: DOMPERIDONE
  57. KETOKONAZOL [Concomitant]
     Active Substance: KETOCONAZOLE
  58. ALVESCO [Concomitant]
     Active Substance: CICLESONIDE
  59. CLONAZEPAM. [Suspect]
     Active Substance: CLONAZEPAM
     Indication: ANXIETY
     Route: 065
  60. PREMARIN [Suspect]
     Active Substance: ESTROGENS, CONJUGATED
     Indication: PRODUCT USED FOR UNKNOWN INDICATION
     Route: 065
  61. FLUTICASONE PROPIONATE. [Concomitant]
     Active Substance: FLUTICASONE PROPIONATE
     Route: 065
  62. CIPRO [Concomitant]
     Active Substance: CIPROFLOXACIN HYDROCHLORIDE
  63. ATROVENT HFA [Concomitant]
     Active Substance: IPRATROPIUM BROMIDE
  64. FEXOFENADINE HCL [Concomitant]
     Active Substance: FEXOFENADINE HYDROCHLORIDE
  65. PAMELOR [Concomitant]
     Active Substance: NORTRIPTYLINE HYDROCHLORIDE
  66. ASTALIN [Concomitant]
     Active Substance: AZELASTINE HYDROCHLORIDE
  67. VALIUM INTRAVENOUS [Concomitant]
  68. ASPIRIN. [Concomitant]
     Active Substance: ASPIRIN
  69. LOVAZA [Concomitant]
     Active Substance: OMEGA-3-ACID ETHYL ESTERS
  70. EFFEXOR [Concomitant]
     Active Substance: VENLAFAXINE HYDROCHLORIDE
  71. REMERON [Concomitant]
     Active Substance: MIRTAZAPINE
  72. AMBIEN [Concomitant]
     Active Substance: ZOLPIDEM TARTRATE

REACTIONS (3)
  - Insomnia [Unknown]
  - Malaise [Unknown]
  - Muscular weakness [Unknown]
